FAERS Safety Report 5698871-4 (Version None)
Quarter: 2008Q2

REPORT INFORMATION
  Report Type: 
  Country: None (occurrence: None)
  Receive Date: 20080408
  Receipt Date: 20060714
  Transmission Date: 20081010
  Serious: No
  Sender: FDA-Public Use
  Company Number: US-BAYER-US-2006-019143

PATIENT
  Age: 58 Year
  Sex: Male
  Weight: 79 kg

DRUGS (8)
  1. ULTRAVIST 300 [Suspect]
     Indication: COMPUTERISED TOMOGRAM ABDOMEN
     Dosage: UNIT DOSE: 150 ML
     Route: 042
     Dates: start: 20060608, end: 20060608
  2. OMEPRAZOLE [Concomitant]
  3. PLAVIX [Concomitant]
  4. FLUVASTATIN [Concomitant]
  5. TOPROL-XL [Concomitant]
  6. NITROGLYCERIN [Concomitant]
  7. NEURONTIN [Concomitant]
  8. LORTAB [Concomitant]

REACTIONS (2)
  - PRURITUS GENERALISED [None]
  - URTICARIA [None]
